FAERS Safety Report 15188632 (Version 2)
Quarter: 2018Q3

REPORT INFORMATION
  Report Type: Spontaneous
  Country: US (occurrence: US)
  Receive Date: 20180724
  Receipt Date: 20180727
  Transmission Date: 20181010
  Serious: No
  Sender: FDA-Public Use
  Company Number: US-PFIZER INC-2018287273

PATIENT
  Age: 63 Year
  Sex: Female
  Weight: 131.54 kg

DRUGS (1)
  1. LYRICA [Suspect]
     Active Substance: PREGABALIN
     Indication: DIABETIC NEUROPATHY
     Dosage: 375 MG, 1X/DAY, (75MG CAPSULE 5 CAPSULES ONCE A DAY)
     Route: 048
     Dates: end: 201807

REACTIONS (8)
  - Nausea [Unknown]
  - Fatigue [Unknown]
  - Pruritus [Unknown]
  - Withdrawal syndrome [Unknown]
  - Pain [Unknown]
  - Prescribed overdose [Unknown]
  - Insomnia [Unknown]
  - Depression [Unknown]

NARRATIVE: CASE EVENT DATE: 201807
